FAERS Safety Report 18792637 (Version 2)
Quarter: 2021Q1

REPORT INFORMATION
  Report Type: Report from Study
  Country: US (occurrence: US)
  Receive Date: 20210127
  Receipt Date: 20210208
  Transmission Date: 20210419
  Serious: Yes (Hospitalization)
  Sender: FDA-Public Use
  Company Number: US-SA-2021SA021357

PATIENT
  Age: 85 Year
  Sex: Female

DRUGS (1)
  1. CEREZYME [Suspect]
     Active Substance: IMIGLUCERASE
     Indication: GAUCHER^S DISEASE
     Dosage: 3200 U, QOW
     Route: 042
     Dates: start: 20120711

REACTIONS (2)
  - Adverse drug reaction [Unknown]
  - Product dose omission issue [Unknown]
